FAERS Safety Report 7655740-8 (Version None)
Quarter: 2011Q3

REPORT INFORMATION
  Report Type: 
  Country: None (occurrence: None)
  Receive Date: 20110801
  Receipt Date: 20110718
  Transmission Date: 20111222
  Serious: Yes (Hospitalization, Other)
  Sender: FDA-Public Use
  Company Number: 2009AL004855

PATIENT
  Age: 62 Year
  Sex: Male

DRUGS (41)
  1. FOSINOPRIL SODIUM [Concomitant]
  2. MAVIK [Concomitant]
  3. HYDROCODONE [Concomitant]
  4. TOPROL-XL [Concomitant]
  5. TRIMOX [Concomitant]
  6. ACETAMINOPHEN [Concomitant]
  7. FISH OIL [Concomitant]
  8. METOPROLOL TARTRATE [Concomitant]
  9. OMEPRAZOLE [Concomitant]
  10. ZOCOR [Concomitant]
  11. LISINOPRIL [Concomitant]
  12. DIGOXIN [Suspect]
     Indication: HEART RATE IRREGULAR
     Dosage: 0.25 MG;QD;PO
     Route: 048
     Dates: start: 20060401, end: 20090601
  13. DIGOXIN [Suspect]
     Indication: MITRAL VALVE PROLAPSE
     Dosage: 0.25 MG;QD;PO
     Route: 048
     Dates: start: 20060401, end: 20090601
  14. NIFEREX [Concomitant]
  15. LOVENOX [Concomitant]
  16. IRON CAPSULES [Concomitant]
  17. NASONEX [Concomitant]
  18. DOVENOX [Concomitant]
  19. LORTAB [Concomitant]
  20. SIMVASTATIN [Concomitant]
  21. AMOXICILLIN [Concomitant]
  22. LASIX [Concomitant]
  23. AMBIEN [Concomitant]
  24. ASPIRIN [Concomitant]
  25. VICODIN [Concomitant]
  26. BENADRYL [Concomitant]
  27. TRILYTE [Concomitant]
  28. METOPROLOL TARTRATE [Concomitant]
  29. SERTRALINE HYDROCHLORIDE [Concomitant]
  30. ALPRAZOLAM [Concomitant]
  31. DIGOXIN [Concomitant]
  32. CITALOPRAM HYDROBROMIDE [Concomitant]
  33. CRESTOR [Concomitant]
  34. ACETAMINPHEN WITH CODEINE [Concomitant]
  35. COUMADIN [Concomitant]
  36. SULFAMETHOXAZOLE AND TRIMETHOPRIM [Concomitant]
  37. METRONIDAZOLE [Concomitant]
  38. CLONAZEPAM [Concomitant]
  39. ROPINIROLE [Concomitant]
  40. LOTRIMIN [Concomitant]
  41. ALBUTEROL SULFATE AUTOHALER [Concomitant]

REACTIONS (55)
  - PAIN [None]
  - LEFT VENTRICULAR HYPERTROPHY [None]
  - MUSCULOSKELETAL CHEST PAIN [None]
  - ABDOMINAL DISCOMFORT [None]
  - INJURY ASSOCIATED WITH DEVICE [None]
  - AORTIC VALVE INCOMPETENCE [None]
  - IMPAIRED HEALING [None]
  - CHANGE OF BOWEL HABIT [None]
  - BRADYCARDIA [None]
  - BLOOD PRESSURE INCREASED [None]
  - FATIGUE [None]
  - PAIN IN EXTREMITY [None]
  - HYPERLIPIDAEMIA [None]
  - MYOCARDIAL ISCHAEMIA [None]
  - CARDIOMEGALY [None]
  - CARDIOACTIVE DRUG LEVEL DECREASED [None]
  - NERVOUSNESS [None]
  - HYPERHIDROSIS [None]
  - MELAENA [None]
  - MEMORY IMPAIRMENT [None]
  - ANXIETY [None]
  - CARDIAC DISORDER [None]
  - OEDEMA PERIPHERAL [None]
  - DEPRESSION [None]
  - DRUG ADMINISTRATION ERROR [None]
  - INSOMNIA [None]
  - ATRIAL FIBRILLATION [None]
  - BACK PAIN [None]
  - CONFUSIONAL STATE [None]
  - VISUAL IMPAIRMENT [None]
  - MULTIPLE INJURIES [None]
  - EYE HAEMORRHAGE [None]
  - OBESITY [None]
  - MUSCULOSKELETAL PAIN [None]
  - PARAESTHESIA [None]
  - HYPOTENSION [None]
  - RENAL TUBULAR DISORDER [None]
  - DEVICE LEAKAGE [None]
  - PALPITATIONS [None]
  - CARDIAC MURMUR [None]
  - CARDIOACTIVE DRUG LEVEL INCREASED [None]
  - CHROMATURIA [None]
  - DIARRHOEA [None]
  - HAEMOLYTIC ANAEMIA [None]
  - DIZZINESS [None]
  - CONJUNCTIVAL HAEMORRHAGE [None]
  - COGNITIVE DISORDER [None]
  - DYSPNOEA EXERTIONAL [None]
  - ARTERIOSCLEROSIS CORONARY ARTERY [None]
  - ASTHENIA [None]
  - RENAL FAILURE ACUTE [None]
  - ABDOMINAL PAIN UPPER [None]
  - GALLBLADDER DISORDER [None]
  - ARTHRALGIA [None]
  - VENTRICULAR EXTRASYSTOLES [None]
